FAERS Safety Report 14336703 (Version 2)
Quarter: 2018Q1

REPORT INFORMATION
  Report Type: Report from Study
  Country: US (occurrence: US)
  Receive Date: 20171229
  Receipt Date: 20180111
  Transmission Date: 20180509
  Serious: Yes (Hospitalization)
  Sender: FDA-Public Use
  Company Number: US-SAOL THERAPEUTICS-2017SAO01124

PATIENT
  Age: 54 Year
  Sex: Female

DRUGS (80)
  1. COMPOUNDED BACLOFEN [Suspect]
     Active Substance: BACLOFEN
     Dosage: 80.57 ?G, \DAY
     Route: 037
     Dates: start: 20170214, end: 20170221
  2. MORPHINE [Suspect]
     Active Substance: MORPHINE
     Dosage: 3.199 MG, \DAY
     Route: 037
     Dates: start: 20170202, end: 20170214
  3. MORPHINE [Suspect]
     Active Substance: MORPHINE
     Dosage: 2.697 MG, \DAY
     Route: 037
     Dates: start: 20170221, end: 20170411
  4. CLONIDINE. [Suspect]
     Active Substance: CLONIDINE
     Dosage: 119.92 ?G, \DAY
     Route: 037
     Dates: start: 20170130, end: 20170202
  5. CLONIDINE. [Suspect]
     Active Substance: CLONIDINE
     Dosage: 80.57 ?G, \DAY
     Route: 037
     Dates: start: 20170214, end: 20170221
  6. CLONIDINE. [Suspect]
     Active Substance: CLONIDINE
     Dosage: 52.77 ?G, \DAY
     Route: 037
     Dates: start: 20170221, end: 20170411
  7. DROPERIDOL. [Suspect]
     Active Substance: DROPERIDOL
     Dosage: 107.96 ?G, \DAY
     Route: 037
     Dates: start: 20170202, end: 20170214
  8. BUPIVACAINE. [Suspect]
     Active Substance: BUPIVACAINE
     Dosage: 5.005 MG, \DAY
     Route: 037
     Dates: start: 20170420
  9. DROPERIDOL. [Suspect]
     Active Substance: DROPERIDOL
     Dosage: 250.01 ?G, \DAY
     Route: 037
     Dates: start: 20170913, end: 20170925
  10. DROPERIDOL. [Suspect]
     Active Substance: DROPERIDOL
     Dosage: 371.41 ?G, \DAY; MAX DOSE
     Route: 037
     Dates: start: 20170913, end: 20170925
  11. COMPOUNDED BACLOFEN [Suspect]
     Active Substance: BACLOFEN
     Dosage: 119.92 ?G, \DAY
     Route: 037
     Dates: start: 20170130, end: 20170202
  12. COMPOUNDED BACLOFEN [Suspect]
     Active Substance: BACLOFEN
     Dosage: 44.97 ?G, \DAY
     Route: 037
     Dates: start: 20170214, end: 20170221
  13. COMPOUNDED BACLOFEN [Suspect]
     Active Substance: BACLOFEN
     Dosage: 133.99 ?G, \DAY
     Route: 037
     Dates: start: 20170420
  14. BUPIVACAINE. [Suspect]
     Active Substance: BUPIVACAINE
     Dosage: 8.092 MG, \DAY
     Route: 037
     Dates: start: 20170221, end: 20170411
  15. BUPIVACAINE. [Suspect]
     Active Substance: BUPIVACAINE
     Dosage: 34.622 MG, \DAY; MAX DOSE
     Route: 037
     Dates: start: 20170925
  16. CLONIDINE. [Suspect]
     Active Substance: CLONIDINE
     Dosage: 152.9 ?G, \DAY
     Route: 037
     Dates: start: 20170130, end: 20170202
  17. CLONIDINE. [Suspect]
     Active Substance: CLONIDINE
     Dosage: 80.92 ?G, \DAY
     Route: 037
     Dates: start: 20170221, end: 20170411
  18. DROPERIDOL. [Suspect]
     Active Substance: DROPERIDOL
     Dosage: 43.98 ?G, \DAY
     Route: 037
     Dates: start: 20170221, end: 20170411
  19. MORPHINE [Suspect]
     Active Substance: MORPHINE
     Dosage: 10 MG, \DAY
     Route: 037
     Dates: start: 20170913, end: 20170925
  20. MORPHINE [Suspect]
     Active Substance: MORPHINE
     Dosage: 17.311 MG, \DAY; MAX DOSE
     Route: 037
     Dates: start: 20170925
  21. CLONIDINE. [Suspect]
     Active Substance: CLONIDINE
     Dosage: 300.01 ?G, \DAY
     Route: 037
     Dates: start: 20170913, end: 20170925
  22. DROPERIDOL. [Suspect]
     Active Substance: DROPERIDOL
     Dosage: 312.24 ?G, \DAY
     Route: 037
     Dates: start: 20170925
  23. COMPOUNDED BACLOFEN [Suspect]
     Active Substance: BACLOFEN
     Dosage: 75.07 ?G, \DAY
     Route: 037
     Dates: start: 20170420
  24. BUPIVACAINE. [Suspect]
     Active Substance: BUPIVACAINE
     Dosage: 20.001 MG, \DAY
     Route: 037
     Dates: start: 20170913, end: 20170925
  25. CLONIDINE. [Suspect]
     Active Substance: CLONIDINE
     Dosage: 44.97 ?G, \DAY
     Route: 037
     Dates: start: 20170214, end: 20170221
  26. CLONIDINE. [Suspect]
     Active Substance: CLONIDINE
     Dosage: 133.99 ?G, \DAY
     Route: 037
     Dates: start: 20170420
  27. DROPERIDOL. [Suspect]
     Active Substance: DROPERIDOL
     Dosage: 127.42 ?G, \DAY
     Route: 037
     Dates: start: 20170130, end: 20170202
  28. DROPERIDOL. [Suspect]
     Active Substance: DROPERIDOL
     Dosage: 37.48 ?G, \DAY
     Route: 037
     Dates: start: 20170214, end: 20170221
  29. DROPERIDOL. [Suspect]
     Active Substance: DROPERIDOL
     Dosage: 67.43 ?G, \DAY
     Route: 037
     Dates: start: 20170221, end: 20170411
  30. DROPERIDOL. [Suspect]
     Active Substance: DROPERIDOL
     Dosage: 62.56 ?G, \DAY
     Route: 037
     Dates: start: 20170420
  31. CLONIDINE. [Suspect]
     Active Substance: CLONIDINE
     Dosage: 445.69 ?G, \DAY; MAX DOSE
     Route: 037
     Dates: start: 20170913, end: 20170925
  32. COMPOUNDED BACLOFEN [Suspect]
     Active Substance: BACLOFEN
     Dosage: 52.77 ?G, \DAY
     Route: 037
     Dates: start: 20170221, end: 20170411
  33. MORPHINE [Suspect]
     Active Substance: MORPHINE
     Dosage: 1.499 MG, \DAY
     Route: 037
     Dates: start: 20170214, end: 20170221
  34. MORPHINE [Suspect]
     Active Substance: MORPHINE
     Dosage: 2.686 MG, \DAY
     Route: 037
     Dates: start: 20170214, end: 20170221
  35. MORPHINE [Suspect]
     Active Substance: MORPHINE
     Dosage: 2.502 MG, \DAY
     Route: 037
     Dates: start: 20170420
  36. BUPIVACAINE. [Suspect]
     Active Substance: BUPIVACAINE
     Dosage: 11.992 MG, \DAY
     Route: 037
     Dates: start: 20170130, end: 20170202
  37. BUPIVACAINE. [Suspect]
     Active Substance: BUPIVACAINE
     Dosage: 6.456 MG, \DAY
     Route: 037
     Dates: start: 20170411, end: 20170420
  38. BUPIVACAINE. [Suspect]
     Active Substance: BUPIVACAINE
     Dosage: 24.979 MG, \DAY
     Route: 037
     Dates: start: 20170925
  39. DROPERIDOL. [Suspect]
     Active Substance: DROPERIDOL
     Dosage: 90.25 ?G, \DAY
     Route: 037
     Dates: start: 20170411, end: 20170420
  40. MORPHINE [Suspect]
     Active Substance: MORPHINE
     Dosage: 12.490 MG, \DAY
     Route: 037
     Dates: start: 20170925
  41. DROPERIDOL. [Suspect]
     Active Substance: DROPERIDOL
     Dosage: 432.78 ?G, \DAY; MAX DOSE
     Route: 037
     Dates: start: 20170925
  42. MORPHINE [Suspect]
     Active Substance: MORPHINE
     Dosage: 3.997 MG, \DAY
     Route: 037
     Dates: start: 20170130, end: 20170202
  43. MORPHINE [Suspect]
     Active Substance: MORPHINE
     Dosage: 5.097 MG, \DAY
     Route: 037
     Dates: start: 20170130, end: 20170202
  44. MORPHINE [Suspect]
     Active Substance: MORPHINE
     Dosage: 4.318 MG, \DAY
     Route: 037
     Dates: start: 20170202, end: 20170214
  45. MORPHINE [Suspect]
     Active Substance: MORPHINE
     Dosage: 3.610 MG, \DAY
     Route: 037
     Dates: start: 20170411, end: 20170420
  46. BUPIVACAINE. [Suspect]
     Active Substance: BUPIVACAINE
     Dosage: 5.277 MG, \DAY
     Route: 037
     Dates: start: 20170221, end: 20170411
  47. BUPIVACAINE. [Suspect]
     Active Substance: BUPIVACAINE
     Dosage: 10.829 MG, \DAY
     Route: 037
     Dates: start: 20170411, end: 20170420
  48. CLONIDINE. [Suspect]
     Active Substance: CLONIDINE
     Dosage: 129.55 ?G, \DAY
     Route: 037
     Dates: start: 20170202, end: 20170214
  49. CLONIDINE. [Suspect]
     Active Substance: CLONIDINE
     Dosage: 108.29 ?G, \DAY
     Route: 037
     Dates: start: 20170411, end: 20170420
  50. DROPERIDOL. [Suspect]
     Active Substance: DROPERIDOL
     Dosage: 79.98 ?G, \DAY
     Route: 037
     Dates: start: 20170202, end: 20170214
  51. DROPERIDOL. [Suspect]
     Active Substance: DROPERIDOL
     Dosage: 67.14 ?G, \DAY
     Route: 037
     Dates: start: 20170214, end: 20170221
  52. COMPOUNDED BACLOFEN [Suspect]
     Active Substance: BACLOFEN
     Dosage: 445.69 ?G, \DAY; MAX DOSE
     Route: 037
     Dates: start: 20170913, end: 20170925
  53. CLONIDINE. [Suspect]
     Active Substance: CLONIDINE
     Dosage: 519.33 ?G, \DAY; MAX DOSE
     Route: 037
     Dates: start: 20170925
  54. COMPOUNDED BACLOFEN [Suspect]
     Active Substance: BACLOFEN
     Dosage: 129.55 ?G, \DAY
     Route: 037
     Dates: start: 20170202, end: 20170214
  55. COMPOUNDED BACLOFEN [Suspect]
     Active Substance: BACLOFEN
     Dosage: 80.92 ?G, \DAY
     Route: 037
     Dates: start: 20170221, end: 20170411
  56. MORPHINE [Suspect]
     Active Substance: MORPHINE
     Dosage: 1.759 MG, \DAY
     Route: 037
     Dates: start: 20170221, end: 20170411
  57. MORPHINE [Suspect]
     Active Substance: MORPHINE
     Dosage: 4.466 MG, \DAY
     Route: 037
     Dates: start: 20170420
  58. BUPIVACAINE. [Suspect]
     Active Substance: BUPIVACAINE
     Dosage: 9.598 MG, \DAY
     Route: 037
     Dates: start: 20170202, end: 20170214
  59. BUPIVACAINE. [Suspect]
     Active Substance: BUPIVACAINE
     Dosage: 4.497 MG, \DAY
     Route: 037
     Dates: start: 20170214, end: 20170221
  60. DROPERIDOL. [Suspect]
     Active Substance: DROPERIDOL
     Dosage: 111.66 ?G, \DAY
     Route: 037
     Dates: start: 20170420
  61. COMPOUNDED BACLOFEN [Suspect]
     Active Substance: BACLOFEN
     Dosage: 374.69 ?G, \DAY
     Route: 037
     Dates: start: 20170925
  62. COMPOUNDED BACLOFEN [Suspect]
     Active Substance: BACLOFEN
     Dosage: 95.98 ?G, \DAY
     Route: 037
     Dates: start: 20170202, end: 20170214
  63. BUPIVACAINE. [Suspect]
     Active Substance: BUPIVACAINE
     Dosage: 12.955 MG, \DAY
     Route: 037
     Dates: start: 20170202, end: 20170214
  64. BUPIVACAINE. [Suspect]
     Active Substance: BUPIVACAINE
     Dosage: 29.713 MG, \DAY; MAX DOSE
     Route: 037
     Dates: start: 20170913, end: 20170925
  65. CLONIDINE. [Suspect]
     Active Substance: CLONIDINE
     Dosage: 95.98 ?G, \DAY
     Route: 037
     Dates: start: 20170202, end: 20170214
  66. DROPERIDOL. [Suspect]
     Active Substance: DROPERIDOL
     Dosage: 53.80 ?G, \DAY
     Route: 037
     Dates: start: 20170411, end: 20170420
  67. BUPIVACAINE. [Suspect]
     Active Substance: BUPIVACAINE
     Dosage: 8.933 MG, \DAY
     Route: 037
     Dates: start: 20170420
  68. COMPOUNDED BACLOFEN [Suspect]
     Active Substance: BACLOFEN
     Dosage: 300.01 ?G, \DAY
     Route: 037
     Dates: start: 20170913, end: 20170925
  69. COMPOUNDED BACLOFEN [Suspect]
     Active Substance: BACLOFEN
     Dosage: 519.33 ?G, \DAY; MAX DOSE
     Route: 037
     Dates: start: 20170925
  70. CLONIDINE. [Suspect]
     Active Substance: CLONIDINE
     Dosage: 374.69 ?G, \DAY
     Route: 037
     Dates: start: 20170925
  71. COMPOUNDED BACLOFEN [Suspect]
     Active Substance: BACLOFEN
     Dosage: 152.9 ?G, \DAY
     Route: 037
     Dates: start: 20170130, end: 20170202
  72. COMPOUNDED BACLOFEN [Suspect]
     Active Substance: BACLOFEN
     Dosage: 64.56 ?G, \DAY
     Route: 037
     Dates: start: 20170411, end: 20170420
  73. COMPOUNDED BACLOFEN [Suspect]
     Active Substance: BACLOFEN
     Dosage: 108.29 ?G, \DAY
     Route: 037
     Dates: start: 20170411, end: 20170420
  74. MORPHINE [Suspect]
     Active Substance: MORPHINE
     Dosage: 2.152 MG, \DAY
     Route: 037
     Dates: start: 20170411, end: 20170420
  75. BUPIVACAINE. [Suspect]
     Active Substance: BUPIVACAINE
     Dosage: 15.29 MG, \DAY
     Route: 037
     Dates: start: 20170130, end: 20170202
  76. BUPIVACAINE. [Suspect]
     Active Substance: BUPIVACAINE
     Dosage: 8.057 MG, \DAY
     Route: 037
     Dates: start: 20170214, end: 20170221
  77. CLONIDINE. [Suspect]
     Active Substance: CLONIDINE
     Dosage: 64.56 ?G, \DAY
     Route: 037
     Dates: start: 20170411, end: 20170420
  78. CLONIDINE. [Suspect]
     Active Substance: CLONIDINE
     Dosage: 75.07 ?G, \DAY
     Route: 037
     Dates: start: 20170420
  79. DROPERIDOL. [Suspect]
     Active Substance: DROPERIDOL
     Dosage: 99.93 ?G, \DAY
     Route: 037
     Dates: start: 20170130, end: 20170202
  80. MORPHINE [Suspect]
     Active Substance: MORPHINE
     Dosage: 14.856 MG, \DAY; MAX DOSE
     Route: 037
     Dates: start: 20170913, end: 20170925

REACTIONS (7)
  - Implant site pain [Recovered/Resolved]
  - Nausea [Recovered/Resolved]
  - Hyperaesthesia [Not Recovered/Not Resolved]
  - Vomiting [Not Recovered/Not Resolved]
  - Pain [Not Recovered/Not Resolved]
  - Hypoaesthesia [Recovered/Resolved]
  - Fatigue [Recovered/Resolved]

NARRATIVE: CASE EVENT DATE: 20170202
